FAERS Safety Report 4994583-0 (Version None)
Quarter: 2006Q2

REPORT INFORMATION
  Report Type: 
  Country: None (occurrence: None)
  Receive Date: 20060505
  Receipt Date: 20060117
  Transmission Date: 20061013
  Serious: Yes (Death, Hospitalization)
  Sender: FDA-Public Use
  Company Number: US-MERCK-0601USA02200

PATIENT
  Age: 70 Year
  Sex: Female

DRUGS (8)
  1. VIOXX [Suspect]
     Route: 048
     Dates: start: 20010101, end: 20030101
  2. NEURONTIN [Concomitant]
     Route: 048
  3. EFFEXOR XR [Concomitant]
     Route: 048
  4. DOXEPIN HYDROCHLORIDE [Concomitant]
     Route: 048
  5. ZIAC [Concomitant]
     Route: 048
  6. PREMARIN [Concomitant]
     Route: 048
  7. VICODIN [Concomitant]
     Route: 048
  8. LOZOL [Concomitant]
     Route: 048

REACTIONS (13)
  - ANAEMIA [None]
  - CARDIAC FAILURE CONGESTIVE [None]
  - CARDIOVASCULAR DISORDER [None]
  - CHRONIC OBSTRUCTIVE PULMONARY DISEASE [None]
  - DEPRESSION [None]
  - ELECTROLYTE IMBALANCE [None]
  - HYPOTENSION [None]
  - MENTAL STATUS CHANGES [None]
  - MYOCARDIAL INFARCTION [None]
  - PNEUMONIA ASPIRATION [None]
  - PULMONARY EMBOLISM [None]
  - RESPIRATORY FAILURE [None]
  - URINARY TRACT INFECTION [None]
